FAERS Safety Report 9667955 (Version 3)
Quarter: 2014Q2

REPORT INFORMATION
  Report Type: Spontaneous
  Country: US (occurrence: None)
  Receive Date: 20131101
  Receipt Date: 20140409
  Transmission Date: 20141212
  Serious: Yes (Other)
  Sender: FDA-Public Use
  Company Number: 2013-US-002322

PATIENT
  Age: 31 Year
  Sex: Female
  Weight: 75.3 kg

DRUGS (9)
  1. XYREM [Suspect]
     Indication: SLEEP DISORDER
     Route: 048
     Dates: start: 201208, end: 2012
  2. AMBIEN (ZOLPIDEM TARTRATE) [Concomitant]
  3. ADDERALL (AMFETAMINE ASPARTATE, AMFETAMINE SULFATE, DEXAMFETAMINE SACCHARATE, DEXAMFETAMINE SULFATE)? [Concomitant]
  4. CLONAZEPAM [Concomitant]
  5. PRISTIQ (DESVENLAFAXINE SUCCINATE) [Concomitant]
  6. NORCO (HYDROCODONE BITARTRATE, PARACETAMOL) [Concomitant]
  7. DILAUDID (HYDROMORPHONE HYDROCHLORIDE) [Concomitant]
  8. OXYCONTIN (OXYCODONE HYDROCHLORIDE) [Concomitant]
  9. TIZANIDINE [Concomitant]

REACTIONS (6)
  - Skin graft [None]
  - Road traffic accident [None]
  - Agoraphobia [None]
  - Paraesthesia [None]
  - Post-traumatic stress disorder [None]
  - Off label use [None]
